FAERS Safety Report 15973777 (Version 1)
Quarter: 2019Q1

REPORT INFORMATION
  Report Type: Other
  Country: PT (occurrence: PT)
  Receive Date: 20190217
  Receipt Date: 20190217
  Transmission Date: 20190418
  Serious: Yes (Death, Life-Threatening, Hospitalization, Other)
  Sender: FDA-Public Use
  Company Number: PT-DEXPHARM-20190096

PATIENT
  Age: 66 Year
  Sex: Male

DRUGS (10)
  1. DESLORATADINE. [Concomitant]
     Active Substance: DESLORATADINE
  2. PARACETAMOL [Concomitant]
     Active Substance: ACETAMINOPHEN
  3. PREDNISOLONE. [Concomitant]
     Active Substance: PREDNISOLONE
  4. ALLOPURINOL NON DEXCEL PRODUCT [Suspect]
     Active Substance: ALLOPURINOL
     Indication: GOUT
     Dosage: 300MG ONCE DAILY
  5. DICLOFENAC [Suspect]
     Active Substance: DICLOFENAC
     Indication: PAIN
  6. OMEPRAZOLE. [Concomitant]
     Active Substance: OMEPRAZOLE
  7. IMMUNE GLOBULIN NOS [Concomitant]
     Active Substance: IMMUNE GLOBULIN NOS
  8. GANCICLOVIR. [Concomitant]
     Active Substance: GANCICLOVIR
  9. MOXIFLOXACIN. [Concomitant]
     Active Substance: MOXIFLOXACIN
  10. METHYLPREDNISOLONE. [Concomitant]
     Active Substance: METHYLPREDNISOLONE

REACTIONS (12)
  - Acute kidney injury [Fatal]
  - Therapy non-responder [None]
  - Hypofibrinogenaemia [None]
  - Normochromic normocytic anaemia [None]
  - Circulatory collapse [Fatal]
  - Pancytopenia [None]
  - Acute respiratory failure [None]
  - Hypertriglyceridaemia [None]
  - Epstein-Barr virus infection [None]
  - Cytomegalovirus infection [None]
  - Drug reaction with eosinophilia and systemic symptoms [Fatal]
  - Haemophagocytic lymphohistiocytosis [Fatal]
